FAERS Safety Report 15005221 (Version 1)
Quarter: 2018Q2

REPORT INFORMATION
  Report Type: Spontaneous
  Country: JP (occurrence: JP)
  Receive Date: 20180613
  Receipt Date: 20180613
  Transmission Date: 20180711
  Serious: Yes (Death, Other)
  Sender: FDA-Public Use
  Company Number: JP-HQ SPECIALTY-JP-2018INT000091

PATIENT
  Age: 63 Year
  Sex: Male

DRUGS (8)
  1. GIMERACIL [Suspect]
     Active Substance: GIMERACIL
     Indication: OESOPHAGEAL SQUAMOUS CELL CARCINOMA
     Dosage: 100 MG/BODY, DAYS 1-28
     Route: 065
  2. OTERACIL [Suspect]
     Active Substance: OTERACIL
     Dosage: 80 MG/BODY
     Route: 065
     Dates: start: 201503
  3. CISPLATIN. [Suspect]
     Active Substance: CISPLATIN
     Indication: OESOPHAGEAL SQUAMOUS CELL CARCINOMA
     Dosage: 40 MG/BODY, DAY 1
     Route: 065
  4. CISPLATIN. [Suspect]
     Active Substance: CISPLATIN
     Dosage: 40 MG/BODY, DAY 1
     Route: 065
     Dates: start: 201503
  5. TEGAFUR [Suspect]
     Active Substance: TEGAFUR
     Dosage: 80 MG/BODY
     Route: 065
     Dates: start: 201503
  6. OTERACIL [Suspect]
     Active Substance: OTERACIL
     Indication: OESOPHAGEAL SQUAMOUS CELL CARCINOMA
     Dosage: 100 MG/BODY, DAYS 1-28
     Route: 065
  7. TEGAFUR [Suspect]
     Active Substance: TEGAFUR
     Indication: OESOPHAGEAL SQUAMOUS CELL CARCINOMA
     Dosage: 100 MG/BODY, DAYS 1-28
     Route: 065
  8. GIMERACIL [Suspect]
     Active Substance: GIMERACIL
     Dosage: 80 MG/BODYUNK
     Route: 065
     Dates: start: 201503

REACTIONS (1)
  - Thrombotic thrombocytopenic purpura [Fatal]
